FAERS Safety Report 22024102 (Version 4)
Quarter: 2023Q2

REPORT INFORMATION
  Report Type: Report from Study
  Country: DE (occurrence: DE)
  Receive Date: 20230223
  Receipt Date: 20230615
  Transmission Date: 20230722
  Serious: Yes (Life-Threatening, Hospitalization, Other)
  Sender: FDA-Public Use
  Company Number: DE-ARGENX-2023-ARGX-DE000558

PATIENT
  Age: 85 Year
  Sex: Male
  Weight: 72 kg

DRUGS (2)
  1. VYVGART [Suspect]
     Active Substance: EFGARTIGIMOD ALFA-FCAB
     Indication: Myasthenia gravis
     Dosage: 720 MG
     Route: 042
     Dates: start: 20230125
  2. VYVGART [Suspect]
     Active Substance: EFGARTIGIMOD ALFA-FCAB
     Dosage: UNK MG

REACTIONS (6)
  - Dyspnoea [Unknown]
  - Chest injury [Unknown]
  - Road traffic accident [Unknown]
  - Malaise [Unknown]
  - Anxiety [Unknown]
  - Dysarthria [Unknown]

NARRATIVE: CASE EVENT DATE: 20230218
